FAERS Safety Report 16949462 (Version 1)
Quarter: 2019Q4

REPORT INFORMATION
  Report Type: Report from Study
  Country: CA (occurrence: CA)
  Receive Date: 20191023
  Receipt Date: 20191023
  Transmission Date: 20200122
  Serious: Yes (Other)
  Sender: FDA-Public Use
  Company Number: CA-ORION CORPORATION ORION PHARMA-TREX2019-4559

PATIENT
  Age: 52 Year
  Sex: Male

DRUGS (25)
  1. COSENTYX [Suspect]
     Active Substance: SECUKINUMAB
     Route: 058
  2. HUMIRA [Concomitant]
     Active Substance: ADALIMUMAB
     Route: 058
  3. METHOTREXATE (TRADE NAME UNKNOWN) [Suspect]
     Active Substance: METHOTREXATE
     Indication: PRODUCT USED FOR UNKNOWN INDICATION
     Route: 065
  4. COSENTYX [Suspect]
     Active Substance: SECUKINUMAB
     Indication: PSORIATIC ARTHROPATHY
     Route: 058
  5. COSENTYX [Suspect]
     Active Substance: SECUKINUMAB
     Route: 058
  6. ARTHROTEC [Concomitant]
     Active Substance: DICLOFENAC SODIUM\MISOPROSTOL
     Route: 065
  7. PREDNISONE. [Concomitant]
     Active Substance: PREDNISONE
     Route: 065
  8. TYLENOL [Concomitant]
     Active Substance: ACETAMINOPHEN
     Route: 065
  9. COSENTYX [Suspect]
     Active Substance: SECUKINUMAB
     Route: 058
  10. COSENTYX [Suspect]
     Active Substance: SECUKINUMAB
     Route: 058
  11. COSENTYX [Suspect]
     Active Substance: SECUKINUMAB
     Route: 058
  12. VOLTAREN [Suspect]
     Active Substance: DICLOFENAC SODIUM
     Indication: PAIN
     Route: 065
  13. OXYCONTIN [Concomitant]
     Active Substance: OXYCODONE HYDROCHLORIDE
     Route: 065
  14. SIMPONI [Concomitant]
     Active Substance: GOLIMUMAB
     Route: 058
  15. COSENTYX [Suspect]
     Active Substance: SECUKINUMAB
     Route: 058
  16. ENBREL [Concomitant]
     Active Substance: ETANERCEPT
     Route: 065
  17. COSENTYX [Suspect]
     Active Substance: SECUKINUMAB
     Route: 058
  18. HYDROXYCHLOROQUINE [Concomitant]
     Active Substance: HYDROXYCHLOROQUINE
     Route: 065
  19. REMICADE [Concomitant]
     Active Substance: INFLIXIMAB
     Route: 042
  20. COSENTYX [Suspect]
     Active Substance: SECUKINUMAB
     Route: 058
  21. COSENTYX [Suspect]
     Active Substance: SECUKINUMAB
     Route: 058
  22. COSENTYX [Suspect]
     Active Substance: SECUKINUMAB
     Route: 058
  23. CELEBREX [Concomitant]
     Active Substance: CELECOXIB
     Route: 065
  24. COSENTYX [Suspect]
     Active Substance: SECUKINUMAB
     Route: 058
  25. LEFLUNOMIDE. [Suspect]
     Active Substance: LEFLUNOMIDE
     Indication: PRODUCT USED FOR UNKNOWN INDICATION
     Route: 065

REACTIONS (9)
  - Chondropathy [Not Recovered/Not Resolved]
  - Inflammation [Not Recovered/Not Resolved]
  - Weight decreased [Not Recovered/Not Resolved]
  - Contusion [Not Recovered/Not Resolved]
  - Renal failure [Not Recovered/Not Resolved]
  - Psoriatic arthropathy [Not Recovered/Not Resolved]
  - Blood pressure increased [Not Recovered/Not Resolved]
  - Joint injury [Not Recovered/Not Resolved]
  - Joint stiffness [Not Recovered/Not Resolved]
